FAERS Safety Report 5312760-6 (Version None)
Quarter: 2007Q2

REPORT INFORMATION
  Report Type: 
  Country: None (occurrence: None)
  Receive Date: 20070430
  Receipt Date: 20070423
  Transmission Date: 20071010
  Serious: Yes (Other)
  Sender: FDA-Public Use
  Company Number: US-ROXANE LABORATORIES, INC-2007-DE-02346GD

PATIENT
  Sex: Male

DRUGS (6)
  1. SERTRALINE [Suspect]
     Route: 015
  2. DIAZEPAM [Suspect]
     Route: 015
  3. RISPERIDONE [Suspect]
     Route: 015
  4. PIPOTIAZINE [Suspect]
     Route: 015
  5. PROCYCLIDINE HYDROCHLORIDE 2MG TAB [Suspect]
     Route: 015
  6. TEMAZEPAM [Suspect]
     Route: 015

REACTIONS (1)
  - NEURODEVELOPMENTAL DISORDER [None]
